FAERS Safety Report 18305757 (Version 1)
Quarter: 2020Q3

REPORT INFORMATION
  Report Type: Spontaneous
  Country: DE (occurrence: DE)
  Receive Date: 20200923
  Receipt Date: 20200923
  Transmission Date: 20201103
  Serious: Yes (Hospitalization)
  Sender: FDA-Public Use
  Company Number: DE-ANIPHARMA-2020-DE-000208

PATIENT
  Age: 84 Year
  Sex: Male
  Weight: 68 kg

DRUGS (11)
  1. SPIOLTO RESPIMAT [Concomitant]
     Active Substance: OLODATEROL HYDROCHLORIDE\TIOTROPIUM BROMIDE MONOHYDRATE
     Dosage: 2.5/2.5 MICROGRAM, TWO TIMES A DAY
     Route: 055
  2. APIXABAN [Concomitant]
     Active Substance: APIXABAN
     Dosage: 2.5 MG BID
     Route: 048
  3. CANDESARTAN. [Suspect]
     Active Substance: CANDESARTAN
     Indication: PRODUCT USED FOR UNKNOWN INDICATION
     Dosage: 16 MG Q12H
     Route: 048
  4. BUDESONIDE. [Concomitant]
     Active Substance: BUDESONIDE
     Dosage: 0.2 MG BID
     Route: 055
  5. COLECALCIFEROL [Concomitant]
     Active Substance: CHOLECALCIFEROL
     Dosage: 1000 IU QD
     Route: 048
  6. TORASEMIDE [Suspect]
     Active Substance: TORSEMIDE
     Dosage: 10 MG BID
     Route: 048
  7. SALBUTAMOL [Concomitant]
     Active Substance: ALBUTEROL
     Dosage: 0.1 MG QD
     Route: 055
  8. PANTOPRAZOL [Concomitant]
     Active Substance: PANTOPRAZOLE SODIUM
     Dosage: 40 MG QD
     Route: 048
  9. ALLOPURINOL. [Suspect]
     Active Substance: ALLOPURINOL
     Dosage: 100 MG QD
     Route: 048
  10. LEFLUNOMIDE. [Suspect]
     Active Substance: LEFLUNOMIDE
     Dosage: 10 MG QD
     Route: 048
  11. SIMVASTATIN. [Concomitant]
     Active Substance: SIMVASTATIN
     Dosage: 20 MG QD
     Route: 048

REACTIONS (6)
  - Dyspnoea [Recovering/Resolving]
  - Electrolyte imbalance [Recovering/Resolving]
  - Fatigue [Recovering/Resolving]
  - General physical health deterioration [Recovering/Resolving]
  - Condition aggravated [Recovering/Resolving]
  - Oedema peripheral [Recovering/Resolving]
